FAERS Safety Report 7220563-0 (Version None)
Quarter: 2011Q1

REPORT INFORMATION
  Report Type: 
  Country: None (occurrence: None)
  Receive Date: 20110111
  Receipt Date: 20110110
  Transmission Date: 20110831
  Serious: Yes (Death, Hospitalization)
  Sender: FDA-Public Use
  Company Number: US-ABBOTT-11P-163-0696071-00

PATIENT
  Sex: Male
  Weight: 127.12 kg

DRUGS (2)
  1. UNKNOWN HIGH BLOOD PRESSURE [Concomitant]
     Indication: HYPERTENSION
  2. HUMIRA [Suspect]
     Indication: ANKYLOSING SPONDYLITIS
     Dates: start: 20080901

REACTIONS (1)
  - DEATH [None]
